FAERS Safety Report 6787418-7 (Version None)
Quarter: 2010Q2

REPORT INFORMATION
  Report Type: 
  Country: None (occurrence: None)
  Receive Date: 20100623
  Receipt Date: 20070621
  Transmission Date: 20101027
  Serious: Yes (Other)
  Sender: FDA-Public Use
  Company Number: US-PFIZER INC-2007035170

PATIENT
  Sex: Female

DRUGS (1)
  1. GEODON [Suspect]
     Route: 030

REACTIONS (1)
  - PARKINSONIAN REST TREMOR [None]
